FAERS Safety Report 13468258 (Version 2)
Quarter: 2018Q2

REPORT INFORMATION
  Report Type: Spontaneous
  Country: US (occurrence: US)
  Receive Date: 20170421
  Receipt Date: 20180531
  Transmission Date: 20180711
  Serious: Yes (Other)
  Sender: FDA-Public Use
  Company Number: US-MUNDIPHARMA DS AND PHARMACOVIGILANCE-USA-2017-0135972

PATIENT
  Sex: Female

DRUGS (1)
  1. OXYCONTIN [Suspect]
     Active Substance: OXYCODONE HYDROCHLORIDE
     Indication: FRACTURED COCCYX
     Dosage: UNK
     Route: 048

REACTIONS (7)
  - Blood potassium decreased [Unknown]
  - Gastrointestinal disorder [Unknown]
  - Detoxification [Recovered/Resolved]
  - Hypophagia [Unknown]
  - Overdose [Recovered/Resolved]
  - Mass [Unknown]
  - Insomnia [Unknown]

NARRATIVE: CASE EVENT DATE: 2007
